FAERS Safety Report 4962842-3 (Version None)
Quarter: 2006Q1

REPORT INFORMATION
  Report Type: 
  Country: None (occurrence: None)
  Receive Date: 20060331
  Receipt Date: 20060317
  Transmission Date: 20060701
  Serious: Yes (Death, Hospitalization)
  Sender: FDA-Public Use
  Company Number: FRWYE480617MAR06

PATIENT
  Age: 23 Year
  Sex: Female

DRUGS (1)
  1. ADEPAL (LEVONORGESTREL/ETHINYL ESTRADIOL, TABLET, 0) [Suspect]
     Indication: ORAL CONTRACEPTION
     Dosage: 1 TABLET 1X PER 1 DAY ORAL
     Route: 048

REACTIONS (6)
  - CARDIO-RESPIRATORY ARREST [None]
  - CHEST PAIN [None]
  - COR PULMONALE ACUTE [None]
  - MICROCYTIC ANAEMIA [None]
  - PULMONARY EMBOLISM [None]
  - RED BLOOD CELL COUNT DECREASED [None]
